FAERS Safety Report 7937496-4 (Version None)
Quarter: 2011Q4

REPORT INFORMATION
  Report Type: 
  Country: None (occurrence: None)
  Receive Date: 20111123
  Receipt Date: 20111117
  Transmission Date: 20120403
  Serious: Yes (Other)
  Sender: FDA-Public Use
  Company Number: CA-JNJFOC-20111108550

PATIENT
  Sex: Male

DRUGS (1)
  1. EXTRA STRENGTH TYLENOL COLD [Suspect]
     Indication: PRODUCT USED FOR UNKNOWN INDICATION
     Route: 048
     Dates: start: 20111115

REACTIONS (2)
  - PRODUCT LABEL ISSUE [None]
  - STATUS EPILEPTICUS [None]
